FAERS Safety Report 12416197 (Version 3)
Quarter: 2016Q4

REPORT INFORMATION
  Report Type: Spontaneous
  Country: IT (occurrence: IT)
  Receive Date: 20160530
  Receipt Date: 20161004
  Transmission Date: 20170207
  Serious: Yes (Life-Threatening)
  Sender: FDA-Public Use
  Company Number: IT-PFIZER INC-2016271566

PATIENT
  Age: 79 Year
  Sex: Male

DRUGS (4)
  1. DIBASE [Concomitant]
     Active Substance: CHOLECALCIFEROL
  2. SUTENT [Suspect]
     Active Substance: SUNITINIB MALATE
     Indication: RENAL NEOPLASM
     Dosage: 1 DF, CYCLIC
     Route: 048
     Dates: start: 20160429, end: 20160511
  3. AVODART [Concomitant]
     Active Substance: DUTASTERIDE
  4. SILODYX [Concomitant]
     Active Substance: SILODOSIN

REACTIONS (2)
  - Bradyarrhythmia [Recovering/Resolving]
  - Blood pressure increased [Recovering/Resolving]

NARRATIVE: CASE EVENT DATE: 20160511
